FAERS Safety Report 24824783 (Version 1)
Quarter: 2025Q1

REPORT INFORMATION
  Report Type: Report from Study
  Country: DE (occurrence: DE)
  Receive Date: 20250109
  Receipt Date: 20250109
  Transmission Date: 20250409
  Serious: Yes (Other)
  Sender: TEVA
  Company Number: DE-TEVA-VS-3282525

PATIENT
  Age: 45 Year
  Sex: Female

DRUGS (1)
  1. COPAXONE [Suspect]
     Active Substance: GLATIRAMER ACETATE
     Indication: Multiple sclerosis
     Route: 065
     Dates: start: 20241215

REACTIONS (18)
  - Osteoarthritis [Unknown]
  - Gait disturbance [Unknown]
  - Hypoaesthesia [Unknown]
  - Tremor [Unknown]
  - Chest pain [Unknown]
  - Asthenia [Unknown]
  - Palpitations [Unknown]
  - Chills [Unknown]
  - Headache [Unknown]
  - Pain in extremity [Not Recovered/Not Resolved]
  - Genital burning sensation [Unknown]
  - Arthralgia [Unknown]
  - Neck pain [Unknown]
  - Speech disorder [Recovered/Resolved]
  - Fatigue [Unknown]
  - Eructation [Unknown]
  - Paraesthesia [Unknown]
  - Dyspnoea [Unknown]

NARRATIVE: CASE EVENT DATE: 20241201
